FAERS Safety Report 5699827-8 (Version None)
Quarter: 2008Q2

REPORT INFORMATION
  Report Type: 
  Country: None (occurrence: None)
  Receive Date: 20080410
  Receipt Date: 20080403
  Transmission Date: 20081010
  Serious: Yes (Death, Hospitalization)
  Sender: FDA-Public Use
  Company Number: GB-BOEHRINGER INGELHEIM GMBH, GERMANY-2008-DE-02056GD

PATIENT
  Age: 52 Year
  Sex: Male

DRUGS (10)
  1. MORPHINE SULFATE [Suspect]
     Indication: CANCER PAIN
  2. MORPHINE SULFATE [Suspect]
     Route: 048
  3. OXYCODONE HCL [Suspect]
     Indication: CANCER PAIN
     Route: 058
  4. OXYCODONE HCL [Suspect]
     Route: 058
  5. OXYCODONE HCL [Suspect]
     Route: 058
  6. PARACETAMOL [Concomitant]
  7. DIAZEPAM [Concomitant]
  8. DICLOFENAC SODIUM [Concomitant]
  9. GABAPENTIN [Concomitant]
  10. HORMONE THERAPY [Concomitant]

REACTIONS (10)
  - AGITATION [None]
  - ALLODYNIA [None]
  - BACK PAIN [None]
  - DEATH [None]
  - DRUG INEFFECTIVE [None]
  - HYPERAESTHESIA [None]
  - MYOCLONUS [None]
  - SOMNOLENCE [None]
  - SPINAL CORD COMPRESSION [None]
  - URINARY RETENTION [None]
